FAERS Safety Report 9690187 (Version 2)
Quarter: 2013Q4

REPORT INFORMATION
  Report Type: Report from Study
  Country: US (occurrence: US)
  Receive Date: 20131115
  Receipt Date: 20131209
  Transmission Date: 20140711
  Serious: Yes (Hospitalization, Other)
  Sender: FDA-Public Use
  Company Number: PHEH2013US023886

PATIENT
  Sex: Female

DRUGS (1)
  1. AFINITOR [Suspect]
     Indication: MALIGNANT NEOPLASM OF ISLETS OF LANGERHANS
     Dosage: 10 MG, QD
     Route: 048
     Dates: start: 201302, end: 201311

REACTIONS (7)
  - Chronic obstructive pulmonary disease [Unknown]
  - Respiration abnormal [Unknown]
  - Total lung capacity decreased [Unknown]
  - Pulmonary fibrosis [Unknown]
  - Dizziness [Unknown]
  - Weight decreased [Unknown]
  - Asthenia [Unknown]
